FAERS Safety Report 12712334 (Version 1)
Quarter: 2016Q3

REPORT INFORMATION
  Report Type: Spontaneous
  Country: None (occurrence: US)
  Receive Date: 20160902
  Receipt Date: 20160902
  Transmission Date: 20161109
  Serious: No
  Sender: FDA-Public Use
  Company Number: US-MATRIXX INITIATIVES, INC.-1057011

PATIENT
  Age: 21 Year
  Sex: Female
  Weight: 63.64 kg

DRUGS (3)
  1. AFRIN ORIGINAL [Concomitant]
     Active Substance: OXYMETAZOLINE HYDROCHLORIDE
  2. ZICAM COLD REMEDY NASAL SPRAY [Suspect]
     Active Substance: HOMEOPATHICS
     Indication: NASOPHARYNGITIS
     Route: 045
     Dates: start: 20160901, end: 20160901
  3. UNSPECIFIED COUGH DROPS [Concomitant]

REACTIONS (2)
  - Nasal congestion [Not Recovered/Not Resolved]
  - Anosmia [Not Recovered/Not Resolved]
